FAERS Safety Report 21663968 (Version 1)
Quarter: 2022Q4

REPORT INFORMATION
  Report Type: Report from Study
  Country: IT (occurrence: IT)
  Receive Date: 20221130
  Receipt Date: 20221130
  Transmission Date: 20230113
  Serious: Yes (Other)
  Sender: FDA-Public Use
  Company Number: IT-UCBSA-2022068038

PATIENT
  Sex: Female

DRUGS (4)
  1. LACOSAMIDE [Suspect]
     Active Substance: LACOSAMIDE
     Indication: Temporal lobe epilepsy
     Dosage: ONE 50MG TABLET IN THE MORNING AND ONE 50MG TABLET IN THE EVENING
     Dates: start: 20220217
  2. LACOSAMIDE [Suspect]
     Active Substance: LACOSAMIDE
     Dosage: ONE 50MG TABLET + HALF A 50MG TABLET (25MG) DAILY
  3. LACOSAMIDE [Suspect]
     Active Substance: LACOSAMIDE
     Dosage: ONE 50MG TABLET + HALF 50MG TABLET (25MG) IN THE MORNING AND TWO 50MG TABLETS IN THE EVENING
  4. LACOSAMIDE [Suspect]
     Active Substance: LACOSAMIDE
     Dosage: TWO 50MG TABLETS IN THE MORNING AND TWO 50MG TABLETS IN THE EVENING

REACTIONS (9)
  - Loss of consciousness [Unknown]
  - Presyncope [Unknown]
  - Seizure [Unknown]
  - Salivary hypersecretion [Unknown]
  - Confusional state [Unknown]
  - Muscle rigidity [Unknown]
  - Tremor [Unknown]
  - Drug ineffective [Unknown]
  - Wrong technique in product usage process [Unknown]

NARRATIVE: CASE EVENT DATE: 20220901
